FAERS Safety Report 7273715-8 (Version None)
Quarter: 2011Q1

REPORT INFORMATION
  Report Type: 
  Country: None (occurrence: None)
  Receive Date: 20110203
  Receipt Date: 20110131
  Transmission Date: 20110831
  Serious: Yes (Hospitalization, Disabling, Other)
  Sender: FDA-Public Use
  Company Number: US-PFIZER INC-2010147216

PATIENT
  Sex: Female
  Weight: 77 kg

DRUGS (4)
  1. LIPITOR [Suspect]
     Indication: BLOOD CHOLESTEROL INCREASED
     Dosage: 40 MG, 1X/DAY
     Route: 048
     Dates: start: 20080501, end: 20091101
  2. LIPITOR [Suspect]
     Indication: BLOOD TRIGLYCERIDES INCREASED
  3. PREDNISONE [Suspect]
     Indication: RENAL FAILURE
     Dosage: 60 MG, 1X/DAY
     Dates: start: 20100201
  4. LIPITOR [Suspect]
     Indication: HYPERLIPIDAEMIA

REACTIONS (15)
  - MUSCLE ATROPHY [None]
  - MUSCULAR WEAKNESS [None]
  - WEIGHT INCREASED [None]
  - LIVER FUNCTION TEST ABNORMAL [None]
  - BACK PAIN [None]
  - RENAL FAILURE [None]
  - VISUAL IMPAIRMENT [None]
  - IMPAIRED WORK ABILITY [None]
  - MYOPATHY [None]
  - RHABDOMYOLYSIS [None]
  - MOBILITY DECREASED [None]
  - INTERVERTEBRAL DISC PROTRUSION [None]
  - ALOPECIA [None]
  - BLOOD CREATINE PHOSPHOKINASE INCREASED [None]
  - FATIGUE [None]
